FAERS Safety Report 9587327 (Version 2)
Quarter: 2013Q4

REPORT INFORMATION
  Report Type: Report from Study
  Country: US (occurrence: US)
  Receive Date: 20131003
  Receipt Date: 20131003
  Transmission Date: 20140711
  Serious: Yes (Hospitalization)
  Sender: FDA-Public Use
  Company Number: US-SA-MOZO-1000806

PATIENT
  Age: 55 Year
  Sex: Male
  Weight: 81.8 kg

DRUGS (15)
  1. PLERIXAFOR [Suspect]
     Indication: ACUTE MYELOID LEUKAEMIA
     Dosage: DAYS 1, 3, 5, 7, 9,11, 13
     Route: 058
     Dates: start: 20130104, end: 20130116
  2. PLERIXAFOR [Suspect]
     Indication: ACUTE MYELOID LEUKAEMIA
     Dosage: DAYS 1, 3, 5, 7, 9,11, 13
     Route: 058
     Dates: start: 20130104, end: 20130116
  3. PLERIXAFOR [Suspect]
     Indication: ACUTE MYELOID LEUKAEMIA
     Dosage: DAYS 1, 3, 5, 7, 9,11, 13
     Route: 058
     Dates: start: 20130104, end: 20130116
  4. FILGRASTIM [Suspect]
     Indication: ACUTE MYELOID LEUKAEMIA
     Dosage: DAYS 1, 3, 5, 7, 9, 11, 13
     Route: 065
     Dates: start: 20130104
  5. SORAFENIB [Suspect]
     Indication: ACUTE MYELOID LEUKAEMIA
     Dosage: DAYS 1-28
     Route: 048
     Dates: start: 20130104
  6. ALLOPURINOL [Concomitant]
     Indication: GOUT
     Route: 048
  7. AUGMENTIN [Concomitant]
     Indication: ANTIBIOTIC THERAPY
     Dosage: REPORTED DOSE 875
     Route: 048
  8. COLCHICINE [Concomitant]
     Indication: GOUT
     Route: 048
  9. DAPTOMYCIN [Concomitant]
     Dosage: X 5 DAYS, 1/7 11/2013
     Route: 042
     Dates: start: 2013
  10. INVANZ [Concomitant]
     Dosage: X 7 DAYS, 1/7 13/2013
     Route: 042
     Dates: start: 2013
  11. ZESTRIL [Concomitant]
     Indication: BLOOD PRESSURE
     Route: 048
  12. METOPROLOL TARTRATE [Concomitant]
     Indication: BLOOD PRESSURE
     Route: 048
  13. PRILOSEC [Concomitant]
     Indication: GASTROOESOPHAGEAL REFLUX DISEASE
     Route: 048
  14. VALTREX [Concomitant]
     Indication: ANTIVIRAL PROPHYLAXIS
     Route: 048
  15. VFEND [Concomitant]
     Indication: ANTIFUNGAL PROPHYLAXIS
     Route: 048

REACTIONS (1)
  - Leukocytosis [Recovered/Resolved]
